FAERS Safety Report 5294629-9 (Version None)
Quarter: 2007Q2

REPORT INFORMATION
  Report Type: 
  Country: None (occurrence: None)
  Receive Date: 20070412
  Receipt Date: 20070404
  Transmission Date: 20071010
  Serious: Yes (Hospitalization)
  Sender: FDA-Public Use
  Company Number: DK-GLAXOSMITHKLINE-B0464448A

PATIENT
  Age: 25 Year
  Sex: Female

DRUGS (2)
  1. MALARONE [Suspect]
     Indication: MALARIA PROPHYLAXIS
     Route: 065
     Dates: start: 20070110
  2. IPREN [Suspect]

REACTIONS (20)
  - ABDOMINAL PAIN [None]
  - BONE PAIN [None]
  - BOWEL SOUNDS ABNORMAL [None]
  - DECREASED APPETITE [None]
  - DEHYDRATION [None]
  - DIARRHOEA [None]
  - DIZZINESS [None]
  - DRUG INEFFECTIVE [None]
  - FEELING COLD [None]
  - GASTROENTERITIS [None]
  - GASTROINTESTINAL DISORDER [None]
  - HEAD DISCOMFORT [None]
  - HELMINTHIC INFECTION [None]
  - INFECTION [None]
  - MALAISE [None]
  - MALARIA [None]
  - NOCTURIA [None]
  - PARAESTHESIA [None]
  - PYREXIA [None]
  - VOMITING [None]
